FAERS Safety Report 17111416 (Version 1)
Quarter: 2019Q4

REPORT INFORMATION
  Report Type: Spontaneous
  Country: US (occurrence: US)
  Receive Date: 20191203
  Receipt Date: 20191203
  Transmission Date: 20200122
  Serious: Yes (Hospitalization)
  Sender: FDA-Public Use
  Company Number: None

PATIENT
  Age: 71 Year
  Sex: Male
  Weight: 136.4 kg

DRUGS (13)
  1. METOPROLOL. [Concomitant]
     Active Substance: METOPROLOL
  2. MONTELUKAST [Concomitant]
     Active Substance: MONTELUKAST SODIUM
  3. TRAMADOL. [Concomitant]
     Active Substance: TRAMADOL
  4. APIXABAN [Concomitant]
     Active Substance: APIXABAN
  5. SULFMETHOXAZOLE-TRIMETHOPRIM [Concomitant]
  6. ACYCLOVIR. [Concomitant]
     Active Substance: ACYCLOVIR
  7. GABAPENTIN. [Concomitant]
     Active Substance: GABAPENTIN
  8. OXYCODONE [Concomitant]
     Active Substance: OXYCODONE
  9. CHOLECALCIFEROL [Concomitant]
     Active Substance: CHOLECALCIFEROL
  10. MIRTAZAPIN [Concomitant]
     Active Substance: MIRTAZAPINE
  11. AXICABTAGENE CILEUCEL [Suspect]
     Active Substance: AXICABTAGENE CILOLEUCEL
     Dosage: ?          OTHER FREQUENCY:ONCE;?
     Route: 041
     Dates: start: 20181231, end: 20181231
  12. CETRIZINE [Concomitant]
     Active Substance: CETIRIZINE HYDROCHLORIDE
  13. DOCUSATE [Concomitant]
     Active Substance: DOCUSATE

REACTIONS (6)
  - Neurotoxicity [None]
  - Lymphocyte adoptive therapy [None]
  - Encephalopathy [None]
  - Dysphagia [None]
  - Cytokine release syndrome [None]
  - Transaminases increased [None]

NARRATIVE: CASE EVENT DATE: 20181227
